FAERS Safety Report 21969970 (Version 1)
Quarter: 2023Q1

REPORT INFORMATION
  Report Type: Report from Study
  Country: DE (occurrence: DE)
  Receive Date: 20230208
  Receipt Date: 20230208
  Transmission Date: 20230418
  Serious: Yes (Hospitalization)
  Sender: FDA-Public Use
  Company Number: DE-AUROBINDO-AUR-APL-2023-006002

PATIENT
  Age: 17 Year

DRUGS (4)
  1. RISPERIDONE [Suspect]
     Active Substance: RISPERIDONE
     Indication: Intellectual disability
     Dosage: UNK
     Route: 065
  2. RISPERIDONE [Suspect]
     Active Substance: RISPERIDONE
     Indication: Impulsive behaviour
  3. PIPAMPERONE [Suspect]
     Active Substance: PIPAMPERONE
     Indication: Impulsive behaviour
     Dosage: UNK
     Route: 065
  4. PIPAMPERONE [Suspect]
     Active Substance: PIPAMPERONE
     Indication: Intellectual disability

REACTIONS (4)
  - Full blood count abnormal [Unknown]
  - Hepatic enzyme increased [Unknown]
  - Drug interaction [Unknown]
  - Off label use [Unknown]
